FAERS Safety Report 9280401 (Version 2)
Quarter: 2013Q1

REPORT INFORMATION
  Report Type: Spontaneous
  Country: US (occurrence: None)
  Receive Date: 20130125
  Receipt Date: 20130227
  Transmission Date: 20140127
  Serious: Yes (Death, Life-Threatening, Hospitalization)
  Sender: FDA-Public Use
  Company Number: 144169

PATIENT
  Age: 48 Year
  Sex: Male
  Weight: 66 kg

DRUGS (1)
  1. LEUCOVORIN CALCIUM FOR INJ. 50MG - BEDFORD LABS, INC. [Suspect]
     Indication: COLORECTAL CANCER METASTATIC
     Route: 042
     Dates: start: 20121024, end: 20121218

REACTIONS (9)
  - Peritonitis [None]
  - Large intestine perforation [None]
  - Toxicity to various agents [None]
  - Fatigue [None]
  - Vomiting [None]
  - Nausea [None]
  - Diarrhoea [None]
  - Colorectal cancer metastatic [None]
  - Malignant neoplasm progression [None]
